FAERS Safety Report 7211710-5 (Version None)
Quarter: 2011Q1

REPORT INFORMATION
  Report Type: 
  Country: None (occurrence: None)
  Receive Date: 20110105
  Receipt Date: 20101231
  Transmission Date: 20110831
  Serious: Yes (Other)
  Sender: FDA-Public Use
  Company Number: US-PFIZER INC-2011000010

PATIENT
  Sex: Female
  Weight: 118 kg

DRUGS (5)
  1. AVAPRO [Concomitant]
     Indication: HYPERTENSION
     Dosage: UNK
  2. CHANTIX [Suspect]
     Indication: SMOKING CESSATION THERAPY
     Dosage: 0.5 MG, 2X/DAY
     Route: 048
     Dates: start: 20101201, end: 20101231
  3. THYROID TAB [Concomitant]
     Indication: THYROID DISORDER
     Dosage: UNK
  4. METFORMIN [Concomitant]
     Indication: DIABETES MELLITUS
     Dosage: UNK
  5. ADALAT [Concomitant]
     Indication: HYPERTENSION
     Dosage: UNK

REACTIONS (3)
  - DIZZINESS [None]
  - INSOMNIA [None]
  - BLOOD GLUCOSE INCREASED [None]
